FAERS Safety Report 4793398-6 (Version None)
Quarter: 2005Q4

REPORT INFORMATION
  Report Type: 
  Country: None (occurrence: None)
  Receive Date: 20051005
  Receipt Date: 20050927
  Transmission Date: 20060501
  Serious: Yes (Hospitalization, Other)
  Sender: FDA-Public Use
  Company Number: 2005134578

PATIENT
  Sex: Male

DRUGS (5)
  1. LOPID [Suspect]
     Indication: BLOOD CHOLESTEROL
  2. ZOLOFT [Concomitant]
  3. AMITRIPTYLINE HCL [Concomitant]
  4. BENADRYL [Concomitant]
  5. TRICOR [Concomitant]

REACTIONS (9)
  - BODY HEIGHT DECREASED [None]
  - DIABETES MELLITUS [None]
  - FALL [None]
  - LOSS OF CONSCIOUSNESS [None]
  - MYOCARDIAL INFARCTION [None]
  - NO THERAPEUTIC RESPONSE [None]
  - TREATMENT NONCOMPLIANCE [None]
  - WEIGHT DECREASED [None]
  - WEIGHT INCREASED [None]
